FAERS Safety Report 7795087-2 (Version None)
Quarter: 2011Q4

REPORT INFORMATION
  Report Type: 
  Country: None (occurrence: None)
  Receive Date: 20111004
  Receipt Date: 20110923
  Transmission Date: 20120403
  Serious: Yes (Disabling)
  Sender: FDA-Public Use
  Company Number: US-BAYER-2011-090994

PATIENT
  Sex: Female

DRUGS (2)
  1. YASMIN [Suspect]
     Dosage: UNK
     Dates: start: 20090601, end: 20090701
  2. YAZ [Suspect]
     Dosage: UNK
     Dates: start: 20090601, end: 20090701

REACTIONS (4)
  - GALLBLADDER DISORDER [None]
  - INJURY [None]
  - PAIN [None]
  - DEFORMITY [None]
